FAERS Safety Report 13400696 (Version 1)
Quarter: 2017Q2

REPORT INFORMATION
  Report Type: Spontaneous
  Country: US (occurrence: US)
  Receive Date: 20170404
  Receipt Date: 20170404
  Transmission Date: 20170830
  Serious: Yes (Other)
  Sender: FDA-Public Use
  Company Number: US-PRAGMA PHARMACEUTICALS, LLC-2017PRG00035

PATIENT
  Age: 52 Year
  Sex: Female
  Weight: 56.69 kg

DRUGS (10)
  1. UNSPECIFIED VITAMIN C GUMMIES [Concomitant]
     Dosage: 500 MG, 1X/DAY
     Route: 048
  2. DIPHENHYDRAMINE. [Concomitant]
     Active Substance: DIPHENHYDRAMINE
     Indication: INSOMNIA
     Dosage: 50 MG, 1X/DAY BEFORE BED
  3. LEVAQUIN [Concomitant]
     Active Substance: LEVOFLOXACIN
     Indication: BRONCHITIS
     Dosage: UNK
     Dates: start: 201702
  4. TESSALON [Concomitant]
     Active Substance: BENZONATATE
     Indication: BRONCHITIS
  5. TOVIAZ [Suspect]
     Active Substance: FESOTERODINE FUMARATE
     Indication: MICTURITION URGENCY
     Dosage: 4 MG, 1X/DAY
     Route: 048
     Dates: start: 20170206, end: 201702
  6. KEFLEX [Suspect]
     Active Substance: CEPHALEXIN
     Indication: BRONCHITIS
  7. TOVIAZ [Suspect]
     Active Substance: FESOTERODINE FUMARATE
     Dosage: 4 MG, 1X/DAY
     Dates: start: 20170224, end: 20170304
  8. UNSPECIFIED MULTIVITAMIN [Concomitant]
     Dosage: 2 DOSAGE UNITS, 1X/DAY
     Route: 048
  9. TYLENOL EXTRA STRENGTH [Concomitant]
     Active Substance: ACETAMINOPHEN
     Indication: INSOMNIA
     Dosage: 2 TABLETS, 1X/DAY BEFORE BED
  10. PREDNISONE. [Concomitant]
     Active Substance: PREDNISONE
     Indication: BRONCHITIS
     Dosage: UNK
     Dates: start: 201702

REACTIONS (10)
  - Dry mouth [Recovering/Resolving]
  - Bladder spasm [Not Recovered/Not Resolved]
  - Haematuria [Unknown]
  - Micturition urgency [Unknown]
  - Abdominal discomfort [Recovered/Resolved]
  - Drug effect incomplete [Unknown]
  - Nausea [Recovered/Resolved]
  - Pollakiuria [Recovered/Resolved]
  - Diarrhoea [Recovered/Resolved]
  - Bronchitis [Unknown]

NARRATIVE: CASE EVENT DATE: 2017
